FAERS Safety Report 20569970 (Version 1)
Quarter: 2022Q1

REPORT INFORMATION
  Report Type: Other
  Country: US (occurrence: None)
  Receive Date: 20220309
  Receipt Date: 20220309
  Transmission Date: 20220423
  Serious: Yes (Hospitalization, Other)
  Sender: FDA-Public Use
  Company Number: US-ROCHE-3036805

PATIENT
  Age: 61 Year
  Sex: Male
  Weight: 74.910 kg

DRUGS (1)
  1. OCREVUS [Suspect]
     Active Substance: OCRELIZUMAB
     Indication: Multiple sclerosis
     Dosage: DATE OF SERVICE: 08/FEB/2021, 12/JUN/20220/ 18/DEC/2019, 30/MAY/2019, 13/JUN/2019
     Route: 042
     Dates: start: 20190330

REACTIONS (6)
  - Fistula [Not Recovered/Not Resolved]
  - Infection [Recovered/Resolved]
  - Abdominal pain [Recovered/Resolved]
  - Weight decreased [Not Recovered/Not Resolved]
  - White blood cell count increased [Unknown]
  - Diverticulitis [Recovered/Resolved]

NARRATIVE: CASE EVENT DATE: 20210830
